FAERS Safety Report 5302689-1 (Version None)
Quarter: 2007Q2

REPORT INFORMATION
  Report Type: 
  Country: None (occurrence: None)
  Receive Date: 20070419
  Receipt Date: 20070411
  Transmission Date: 20071010
  Serious: Yes (Other)
  Sender: FDA-Public Use
  Company Number: ES-PFIZER INC-2007010750

PATIENT
  Sex: Female
  Weight: 48 kg

DRUGS (4)
  1. LYRICA [Suspect]
     Indication: FIBROMYALGIA
     Route: 048
     Dates: start: 20060301, end: 20060601
  2. MYOLASTAN [Concomitant]
     Route: 048
     Dates: start: 20051201, end: 20060601
  3. MIO RELAX [Concomitant]
     Route: 048
     Dates: start: 20051201, end: 20060601
  4. GELOCATIL [Concomitant]
     Dates: start: 20060101, end: 20070301

REACTIONS (4)
  - CAESAREAN SECTION [None]
  - FATIGUE [None]
  - MENSTRUATION IRREGULAR [None]
  - WEIGHT INCREASED [None]
